FAERS Safety Report 5242903-4 (Version None)
Quarter: 2007Q1

REPORT INFORMATION
  Report Type: 
  Country: None (occurrence: None)
  Receive Date: 20070221
  Receipt Date: 20070215
  Transmission Date: 20070707
  Serious: Yes (Other)
  Sender: FDA-Public Use
  Company Number: US-JNJFOC-20070203962

PATIENT
  Sex: Male
  Weight: 104.33 kg

DRUGS (6)
  1. TYLENOL (CAPLET) [Suspect]
  2. TYLENOL (CAPLET) [Suspect]
     Indication: ARTHRITIS
     Dosage: AS NEEDED
  3. ADVAIR DISKUS 100/50 [Concomitant]
     Indication: ASTHMA
  4. SINGULAIR [Concomitant]
     Indication: SINUS DISORDER
  5. OCUVIT [Concomitant]
  6. CENTRUM SILVER [Concomitant]
     Indication: ROUTINE HEALTH MAINTENANCE

REACTIONS (2)
  - ABNORMAL DREAMS [None]
  - HALLUCINATION [None]
